FAERS Safety Report 5375114-2 (Version None)
Quarter: 2007Q2

REPORT INFORMATION
  Report Type: 
  Country: None (occurrence: None)
  Receive Date: 20070629
  Receipt Date: 20070226
  Transmission Date: 20071010
  Serious: No
  Sender: FDA-Public Use
  Company Number: US-ASTRAZENECA-2006UW09662

PATIENT
  Age: 67 Year
  Sex: Female
  Weight: 76.7 kg

DRUGS (1)
  1. NOLVADEX [Suspect]
     Route: 048
     Dates: start: 19930101, end: 19980101

REACTIONS (4)
  - DRY EYE [None]
  - DRY SKIN [None]
  - VAGINAL HAEMORRHAGE [None]
  - WEIGHT INCREASED [None]
